FAERS Safety Report 8300921-3 (Version None)
Quarter: 2012Q2

REPORT INFORMATION
  Report Type: 
  Country: None (occurrence: None)
  Receive Date: 20120418
  Receipt Date: 20120418
  Transmission Date: 20120825
  Serious: Yes (Disabling)
  Sender: FDA-Public Use
  Company Number: None

PATIENT
  Sex: Female
  Weight: 65.318 kg

DRUGS (2)
  1. REBIF [Suspect]
     Indication: PARAESTHESIA
     Dosage: 44MG/0.5ML  3X/WEEK SUBCUT. INFECTION
     Route: 058
     Dates: start: 20041105, end: 20061215
  2. REBIF [Suspect]
     Indication: HYPOAESTHESIA
     Dosage: 44MG/0.5ML  3X/WEEK SUBCUT. INFECTION
     Route: 058
     Dates: start: 20041105, end: 20061215

REACTIONS (1)
  - MYELITIS TRANSVERSE [None]
